FAERS Safety Report 7382963-8 (Version None)
Quarter: 2011Q1

REPORT INFORMATION
  Report Type: 
  Country: None (occurrence: None)
  Receive Date: 20110328
  Receipt Date: 20110328
  Transmission Date: 20110831
  Serious: Yes (Other)
  Sender: FDA-Public Use
  Company Number: None

PATIENT
  Sex: Female
  Weight: 68.4932 kg

DRUGS (2)
  1. VICODIN [Suspect]
  2. HYDROCODONE BITARTRATE [Suspect]
     Indication: ANALGESIC THERAPY
     Dates: start: 20090101, end: 20100101

REACTIONS (2)
  - URTICARIA [None]
  - PRODUCT SUBSTITUTION ISSUE [None]
